FAERS Safety Report 7508970-X (Version None)
Quarter: 2011Q2

REPORT INFORMATION
  Report Type: 
  Country: None (occurrence: None)
  Receive Date: 20110527
  Receipt Date: 20110520
  Transmission Date: 20111010
  Serious: No
  Sender: FDA-Public Use
  Company Number: US-PFIZER INC-2011110567

PATIENT
  Sex: Male
  Weight: 109.75 kg

DRUGS (4)
  1. SOMATULINE AUTOGEL [Suspect]
     Dosage: 120 MG, EVERY 28 DAYS
     Route: 058
     Dates: start: 20081001, end: 20100501
  2. SOMAVERT [Suspect]
     Indication: ACROMEGALY
     Dosage: UNK, 1X/DAY
  3. CIALIS [Suspect]
     Dosage: UNK
  4. SOMATULINE AUTOGEL [Suspect]
     Indication: ACROMEGALY
     Dosage: 90 MG, EVERY 28 DAYS
     Dates: start: 20110325

REACTIONS (5)
  - PRURITUS [None]
  - DEHYDRATION [None]
  - BLOOD SODIUM DECREASED [None]
  - WEIGHT DECREASED [None]
  - MUSCLE SPASMS [None]
